FAERS Safety Report 5621905-X (Version None)
Quarter: 2008Q1

REPORT INFORMATION
  Report Type: 
  Country: None (occurrence: None)
  Receive Date: 20080211
  Receipt Date: 20080110
  Transmission Date: 20080703
  Serious: No
  Sender: FDA-Public Use
  Company Number: US-BRISTOL-MYERS SQUIBB COMPANY-14037170

PATIENT
  Age: 50 Year
  Sex: Female
  Weight: 113 kg

DRUGS (6)
  1. IXEMPRA [Suspect]
     Indication: BREAST CANCER METASTATIC
     Dates: start: 20080104, end: 20080104
  2. PERCOCET [Concomitant]
  3. PREDNISONE TAB [Concomitant]
  4. ATIVAN [Concomitant]
  5. IMURAN [Concomitant]
  6. BENADRYL [Concomitant]
     Indication: PREMEDICATION

REACTIONS (9)
  - ANOREXIA [None]
  - ASTHENIA [None]
  - DIARRHOEA [None]
  - FATIGUE [None]
  - MOUTH ULCERATION [None]
  - NEUROPATHY PERIPHERAL [None]
  - SKIN EXFOLIATION [None]
  - SKIN ULCER [None]
  - VOMITING [None]
